FAERS Safety Report 4618032-7 (Version None)
Quarter: 2005Q1

REPORT INFORMATION
  Report Type: 
  Country: None (occurrence: None)
  Receive Date: 20050324
  Receipt Date: 20050211
  Transmission Date: 20050727
  Serious: Yes (Disabling)
  Sender: FDA-Public Use
  Company Number: NO-SANOFI-SYNTHELABO-A01200501752

PATIENT
  Age: 81 Year
  Sex: Male

DRUGS (10)
  1. PLAVIX [Suspect]
     Indication: CORONARY ANGIOPLASTY
     Route: 048
     Dates: start: 20041001, end: 20041101
  2. PLAVIX [Suspect]
     Indication: STENT PLACEMENT
     Route: 048
     Dates: start: 20041001, end: 20041101
  3. BURINEX [Concomitant]
     Indication: DRUG USE FOR UNKNOWN INDICATION
     Route: 065
  4. ALBYL-E [Concomitant]
     Indication: DRUG USE FOR UNKNOWN INDICATION
     Route: 065
  5. ATENOLOL [Concomitant]
     Indication: DRUG USE FOR UNKNOWN INDICATION
     Route: 065
  6. IMDUR [Concomitant]
     Indication: DRUG USE FOR UNKNOWN INDICATION
     Route: 065
  7. SIMVASTATIN [Concomitant]
     Indication: DRUG USE FOR UNKNOWN INDICATION
     Route: 065
  8. MINDIAB [Concomitant]
     Indication: DIABETES MELLITUS
     Dosage: ^5 MG + 2.5 MG^
     Route: 065
  9. GLUCOPHAGE [Concomitant]
     Indication: DIABETES MELLITUS
     Route: 065
  10. COZAAR [Concomitant]
     Indication: DRUG USE FOR UNKNOWN INDICATION
     Route: 065

REACTIONS (2)
  - DERMATITIS EXFOLIATIVE [None]
  - PRURITUS GENERALISED [None]
